FAERS Safety Report 6509906-0 (Version None)
Quarter: 2009Q4

REPORT INFORMATION
  Report Type: 
  Country: None (occurrence: None)
  Receive Date: 20091222
  Receipt Date: 20091211
  Transmission Date: 20100525
  Serious: Yes (Hospitalization)
  Sender: FDA-Public Use
  Company Number: PHHY2009IE51847

PATIENT
  Sex: Male

DRUGS (5)
  1. CLOZARIL [Suspect]
     Indication: SCHIZOPHRENIA
     Dosage: UNK
     Route: 048
     Dates: start: 20090902
  2. CLONAZEPAM [Concomitant]
     Indication: CATATONIA
     Route: 048
  3. KWELLS [Concomitant]
     Indication: SALIVARY HYPERSECRETION
     Route: 048
  4. VALPROATE SODIUM [Concomitant]
     Indication: EPILEPSY
     Route: 048
  5. TAZOCIN [Concomitant]

REACTIONS (3)
  - PNEUMONIA [None]
  - RESPIRATORY TRACT INFECTION [None]
  - TACHYCARDIA [None]
